FAERS Safety Report 7019622-7 (Version None)
Quarter: 2010Q3

REPORT INFORMATION
  Report Type: 
  Country: None (occurrence: None)
  Receive Date: 20100928
  Receipt Date: 20100928
  Transmission Date: 20110219
  Serious: Yes (Hospitalization)
  Sender: FDA-Public Use
  Company Number: None

PATIENT
  Age: 75 Year
  Sex: Female
  Weight: 48.0813 kg

DRUGS (2)
  1. BONIVA [Suspect]
     Indication: OSTEOARTHRITIS
  2. BONIVA [Suspect]
     Indication: RHEUMATOID ARTHRITIS

REACTIONS (4)
  - GASTRIC DISORDER [None]
  - JAW DISORDER [None]
  - TOOTH DISORDER [None]
  - URINARY TRACT INFECTION [None]
